FAERS Safety Report 5608788-9 (Version None)
Quarter: 2008Q1

REPORT INFORMATION
  Report Type: 
  Country: None (occurrence: None)
  Receive Date: 20080131
  Receipt Date: 20080130
  Transmission Date: 20080703
  Serious: Yes (Other)
  Sender: FDA-Public Use
  Company Number: US-RB-008361-07

PATIENT
  Sex: Female

DRUGS (2)
  1. SUBUTEX [Suspect]
     Route: 060
     Dates: start: 20071016
  2. SUBOXONE [Suspect]
     Dosage: 4 MG INITIAL DOSE
     Route: 060
     Dates: start: 20071015, end: 20071015

REACTIONS (3)
  - HALLUCINATION [None]
  - NAUSEA [None]
  - VOMITING [None]
